FAERS Safety Report 8031914-1 (Version None)
Quarter: 2012Q1

REPORT INFORMATION
  Report Type: 
  Country: None (occurrence: None)
  Receive Date: 20120109
  Receipt Date: 20120104
  Transmission Date: 20120608
  Serious: Yes (Hospitalization, Disabling, Other)
  Sender: FDA-Public Use
  Company Number: US-PFIZER INC-2011104934

PATIENT
  Sex: Female
  Weight: 112 kg

DRUGS (15)
  1. NEURONTIN [Concomitant]
     Indication: BACK PAIN
  2. CYMBALTA [Concomitant]
     Indication: MENTAL DISORDER
     Dosage: 30 MG, DAILY
     Route: 048
  3. LAMOTRIGINE [Concomitant]
     Indication: BLOOD CHOLESTEROL ABNORMAL
     Dosage: 100 MG, 2X/DAY
     Route: 048
  4. ACTOPLUS MET [Concomitant]
     Indication: DIABETES MELLITUS
     Dosage: 15/850 MG, DAILY
     Route: 048
  5. CLOMIPRAMINE HYDROCHLORIDE [Concomitant]
     Dosage: 100 MG, 1X/DAY AT NIGHT
     Route: 048
  6. SKELAXIN [Concomitant]
     Indication: FIBROMYALGIA
     Dosage: 800 MG, 2X/DAY
     Route: 048
  7. CELEBREX [Suspect]
     Indication: RHEUMATOID ARTHRITIS
     Dosage: 200 MG, 2X/DAY
     Route: 048
  8. NEURONTIN [Concomitant]
     Indication: MENTAL DISORDER
     Dosage: 600 MG, 2X/DAY
     Route: 048
  9. FOSAMAX [Concomitant]
     Indication: BONE DENSITY ABNORMAL
     Dosage: 70 MG, WEEKLY
     Route: 048
  10. VITAMIN D [Concomitant]
     Indication: VITAMIN SUPPLEMENTATION
     Dosage: 5000 UNITS DAILY, 50000 UNITS WEEKLY
     Route: 048
  11. AMITRIPTYLINE HYDROCHLORIDE [Concomitant]
     Indication: DEPRESSION
     Dosage: 50 MG, 2X/DAY
  12. ADVAIR DISKUS 100/50 [Concomitant]
     Indication: CHRONIC OBSTRUCTIVE PULMONARY DISEASE
     Dosage: 250/50 MG, 2X/DAY
  13. VITAMIN D [Concomitant]
     Dosage: 1000 UNITS DAILY
  14. SIMVASTATIN [Concomitant]
     Dosage: 40 MG, DAILY
     Route: 048
  15. CALCIUM [Concomitant]
     Dosage: 5000 MG, ONCE A WEEK

REACTIONS (4)
  - RHEUMATOID ARTHRITIS [None]
  - MUSCULOSKELETAL DISCOMFORT [None]
  - BACK DISORDER [None]
  - PAIN [None]
